FAERS Safety Report 9516991 (Version 1)
Quarter: 2013Q1

REPORT INFORMATION
  Report Type: Spontaneous
  Country: US (occurrence: None)
  Receive Date: 20130305
  Receipt Date: 20130305
  Transmission Date: 20140127
  Serious: Yes (Hospitalization, Other)
  Sender: FDA-Public Use
  Company Number: 163-21880-12011192

PATIENT
  Age: 69 Year
  Sex: Female
  Weight: 63.05 kg

DRUGS (1)
  1. REVLIMID (LENALIDOMIDE) [Suspect]
     Indication: PLASMA CELL MYELOMA
     Dates: start: 20110104, end: 201201

REACTIONS (2)
  - Deep vein thrombosis [None]
  - Thrombosis [None]
